FAERS Safety Report 6379408-3 (Version None)
Quarter: 2009Q3

REPORT INFORMATION
  Report Type: 
  Country: None (occurrence: None)
  Receive Date: 20090928
  Receipt Date: 20090921
  Transmission Date: 20100115
  Serious: Yes (Other)
  Sender: FDA-Public Use
  Company Number: A0801103A

PATIENT
  Age: 62 Year
  Sex: Female
  Weight: 63.6 kg

DRUGS (4)
  1. ADVAIR DISKUS 100/50 [Suspect]
     Indication: ASTHMA
     Dosage: 1PUFF TWICE PER DAY
     Route: 055
     Dates: start: 20060101
  2. NEXIUM [Concomitant]
     Dosage: 40MG PER DAY
     Route: 048
     Dates: start: 20040101
  3. ESTRADIOL [Concomitant]
     Indication: MENOPAUSE
     Dosage: .01U PER DAY
     Route: 048
     Dates: start: 19980101
  4. AYGESTIN [Concomitant]
     Indication: MENOPAUSE
     Route: 048
     Dates: start: 19980101

REACTIONS (1)
  - MACULAR DEGENERATION [None]
